FAERS Safety Report 8167990-5 (Version None)
Quarter: 2012Q1

REPORT INFORMATION
  Report Type: 
  Country: None (occurrence: None)
  Receive Date: 20120227
  Receipt Date: 20120221
  Transmission Date: 20120608
  Serious: Yes (Other)
  Sender: FDA-Public Use
  Company Number: JP-GLAXOSMITHKLINE-B0783751A

PATIENT
  Age: 5 Year
  Sex: Female

DRUGS (1)
  1. RELENZA [Suspect]
     Indication: INFLUENZA
     Dosage: 20MG PER DAY
     Route: 055
     Dates: start: 20120220, end: 20120220

REACTIONS (3)
  - HAEMATEMESIS [None]
  - VOMITING [None]
  - OROPHARYNGEAL DISCOMFORT [None]
